FAERS Safety Report 13703838 (Version 1)
Quarter: 2017Q2

REPORT INFORMATION
  Report Type: Spontaneous
  Country: US (occurrence: US)
  Receive Date: 20170629
  Receipt Date: 20170629
  Transmission Date: 20170830
  Serious: No
  Sender: FDA-Public Use
  Company Number: US-TARO-2016TAR00829

PATIENT
  Sex: Male

DRUGS (2)
  1. CLOTRIMAZOLE/BETAMETHASONE DIPROPIONATE CREAM USP 1%/0.05% [Suspect]
     Active Substance: BETAMETHASONE DIPROPIONATE\CLOTRIMAZOLE
     Indication: RASH
     Dosage: UNK, 2X/DAY
     Route: 061
  2. CLOTRIMAZOLE/BETAMETHASONE DIPROPIONATE CREAM USP 1%/0.05% [Suspect]
     Active Substance: BETAMETHASONE DIPROPIONATE\CLOTRIMAZOLE
     Indication: CELLULITIS

REACTIONS (5)
  - Skin exfoliation [Not Recovered/Not Resolved]
  - Incorrect drug administration duration [Not Recovered/Not Resolved]
  - Blister [Not Recovered/Not Resolved]
  - Erythema [Not Recovered/Not Resolved]
  - Secretion discharge [Not Recovered/Not Resolved]
